FAERS Safety Report 15716480 (Version 1)
Quarter: 2018Q4

REPORT INFORMATION
  Report Type: Spontaneous
  Country: US (occurrence: US)
  Receive Date: 20181213
  Receipt Date: 20181213
  Transmission Date: 20190205
  Serious: No
  Sender: FDA-Public Use
  Company Number: US-DRREDDYS-USA/USA/18/0104515

PATIENT
  Sex: Female
  Weight: 59.1 kg

DRUGS (3)
  1. OMEPRAZOLE. [Suspect]
     Active Substance: OMEPRAZOLE
     Indication: ULCER
     Route: 065
     Dates: start: 20180921
  2. ESTRADIOL. [Concomitant]
     Active Substance: ESTRADIOL
     Indication: HORMONE REPLACEMENT THERAPY
     Route: 065
  3. SUCRALOSE [Concomitant]
     Active Substance: SUCRALOSE
     Indication: GASTRIC ULCER
     Route: 065

REACTIONS (1)
  - Accidental overdose [Unknown]
